FAERS Safety Report 9457407 (Version 1)
Quarter: 2013Q3

REPORT INFORMATION
  Report Type: Spontaneous
  Country: JP (occurrence: JP)
  Receive Date: 20130814
  Receipt Date: 20130814
  Transmission Date: 20140515
  Serious: Yes (Hospitalization)
  Sender: FDA-Public Use
  Company Number: JP-RANBAXY-2006US-01666

PATIENT
  Age: 44 Year
  Sex: Female

DRUGS (3)
  1. LISINOPRIL [Suspect]
     Indication: HYPERTENSION
     Dosage: 10 MG, DAILY
     Route: 065
     Dates: end: 20041005
  2. VALSARTAN [Interacting]
     Indication: HYPERTENSION
     Dosage: 80 MG, DAILY
     Route: 065
     Dates: end: 20041005
  3. QUINAPRIL [Suspect]
     Indication: HYPERTENSION
     Dosage: 20 MG, DAILY
     Route: 065

REACTIONS (6)
  - Angioedema [Recovered/Resolved]
  - Leukocytosis [Recovering/Resolving]
  - Pyrexia [Recovered/Resolved]
  - Hypocomplementaemia [Recovered/Resolved]
  - Anaemia [Unknown]
  - Drug interaction [Unknown]
